FAERS Safety Report 18587498 (Version 2)
Quarter: 2020Q4

REPORT INFORMATION
  Report Type: Spontaneous
  Country: JP (occurrence: JP)
  Receive Date: 20201207
  Receipt Date: 20201215
  Transmission Date: 20210114
  Serious: Yes (Life-Threatening, Hospitalization, Disabling, Other)
  Sender: FDA-Public Use
  Company Number: JP-009507513-2011JPN004068J

PATIENT
  Age: 88 Year
  Sex: Female
  Weight: 57 kg

DRUGS (8)
  1. KAKODIN-D [Concomitant]
     Dosage: UNK
     Route: 051
     Dates: start: 20201001, end: 20201001
  2. FENTANYL. [Concomitant]
     Active Substance: FENTANYL
     Dosage: UNK
     Route: 065
  3. ROCURONIUM BROMIDE. [Concomitant]
     Active Substance: ROCURONIUM BROMIDE
     Dosage: UNK
     Route: 065
     Dates: start: 20201001, end: 20201001
  4. POPSCAINE [Concomitant]
     Active Substance: LEVOBUPIVACAINE HYDROCHLORIDE
     Dosage: UNK
     Route: 051
  5. REMIFENTANIL HYDROCHLORIDE. [Concomitant]
     Active Substance: REMIFENTANIL HYDROCHLORIDE
     Dosage: UNK
     Route: 051
     Dates: start: 20201001, end: 20201001
  6. NEO-SYNESIN [Concomitant]
     Active Substance: PHENYLEPHRINE HYDROCHLORIDE
     Dosage: UNK
     Route: 051
     Dates: start: 20201001, end: 20201001
  7. DIPRIVAN KIT [Concomitant]
     Active Substance: PROPOFOL
     Dosage: UNK
     Route: 051
     Dates: start: 20201001, end: 20201001
  8. BRIDION [Suspect]
     Active Substance: SUGAMMADEX
     Indication: NEUROMUSCULAR BLOCKADE REVERSAL
     Dosage: 200 MILLIGRAM, ONCE
     Route: 042
     Dates: start: 20201001, end: 20201001

REACTIONS (4)
  - Hypoxic-ischaemic encephalopathy [Recovering/Resolving]
  - Bradycardia [Recovering/Resolving]
  - Bronchospasm [Recovering/Resolving]
  - Blood pressure decreased [Recovering/Resolving]

NARRATIVE: CASE EVENT DATE: 20201001
